FAERS Safety Report 8953385 (Version 2)
Quarter: 2012Q4

REPORT INFORMATION
  Report Type: 
  Country: DE (occurrence: DE)
  Receive Date: 20121206
  Receipt Date: 20121218
  Transmission Date: 20130627
  Serious: Yes (Other)
  Sender: FDA-Public Use
  Company Number: DE-RANBAXY-2012RR-62704

PATIENT
  Age: 30 Year
  Sex: Female
  Weight: 65 kg

DRUGS (2)
  1. FLUCONAZOL [Suspect]
     Indication: VAGINAL INFECTION
     Dosage: 150 mg, single
     Route: 048
     Dates: start: 20121012, end: 20121012
  2. L-THYROXIN 50 [Concomitant]
     Indication: HYPOTHYROIDISM
     Dosage: 1 DF, daily
     Route: 065

REACTIONS (4)
  - Angioedema [Recovered/Resolved]
  - Rash vesicular [Recovered/Resolved]
  - Skin burning sensation [Recovered/Resolved]
  - Rash [Recovered/Resolved]
